FAERS Safety Report 6220684-5 (Version None)
Quarter: 2009Q2

REPORT INFORMATION
  Report Type: 
  Country: None (occurrence: None)
  Receive Date: 20090610
  Receipt Date: 20090604
  Transmission Date: 20091009
  Serious: Yes (Other)
  Sender: FDA-Public Use
  Company Number: CH-ROCHE-636541

PATIENT
  Sex: Female

DRUGS (1)
  1. VALIUM [Suspect]
     Route: 064

REACTIONS (4)
  - AUTISM [None]
  - DELINQUENCY [None]
  - DRUG WITHDRAWAL SYNDROME NEONATAL [None]
  - MATERNAL DRUGS AFFECTING FOETUS [None]
